FAERS Safety Report 16885245 (Version 1)
Quarter: 2019Q4

REPORT INFORMATION
  Report Type: Other
  Country: CH (occurrence: CH)
  Receive Date: 20191004
  Receipt Date: 20191004
  Transmission Date: 20200122
  Serious: Yes (Death, Life-Threatening, Hospitalization, Other)
  Sender: FDA-Public Use
  Company Number: CH-AMNEAL PHARMACEUTICALS-2019-AMRX-02025

PATIENT
  Age: 69 Year
  Sex: Female
  Weight: 65 kg

DRUGS (2)
  1. ALBENZA [Suspect]
     Active Substance: ALBENDAZOLE
     Indication: HEPATIC ECHINOCOCCIASIS
     Dosage: 400 MILLIGRAM, BID
     Route: 048
     Dates: start: 20190808, end: 20190820
  2. PEMZEK [Concomitant]
     Indication: PRODUCT USED FOR UNKNOWN INDICATION
     Dosage: UNK
     Route: 065

REACTIONS (6)
  - Jaundice [Fatal]
  - Bone marrow failure [Fatal]
  - Alopecia [Not Recovered/Not Resolved]
  - Acute kidney injury [Fatal]
  - Septic shock [Fatal]
  - Drug-induced liver injury [Fatal]

NARRATIVE: CASE EVENT DATE: 20190820
